FAERS Safety Report 14735803 (Version 2)
Quarter: 2024Q4

REPORT INFORMATION
  Report Type: Spontaneous
  Country: JP (occurrence: JP)
  Receive Date: 20180409
  Receipt Date: 20241024
  Transmission Date: 20250114
  Serious: Yes (Death, Life-Threatening, Hospitalization, Other)
  Sender: BAYER HEALTHCARE PHARMACEUTICALS INC.
  Company Number: JP-BAYER-2017-224849

PATIENT
  Age: 68 Year
  Sex: Male
  Weight: 61.8 kg

DRUGS (12)
  1. XOFIGO [Suspect]
     Active Substance: RADIUM RA-223 DICHLORIDE
     Indication: Metastases to bone
     Dosage: UNK UNK, ONCE
     Route: 042
     Dates: start: 20170823, end: 20170823
  2. XOFIGO [Suspect]
     Active Substance: RADIUM RA-223 DICHLORIDE
     Indication: Hormone-refractory prostate cancer
     Dosage: 55KBQ/KG, ONCE
     Route: 042
     Dates: start: 20170920, end: 20170920
  3. XOFIGO [Suspect]
     Active Substance: RADIUM RA-223 DICHLORIDE
     Indication: Metastases to bone
     Dosage: 55KBQ/KG,ONCE
     Route: 042
     Dates: start: 20171018, end: 20171018
  4. DENOSUMAB [Concomitant]
     Active Substance: DENOSUMAB
     Indication: Metastases to bone
     Dosage: DAILY DOSE 120 MG
     Route: 042
     Dates: end: 20180117
  5. DEGARELIX [Concomitant]
     Active Substance: DEGARELIX
     Indication: Hormone-refractory prostate cancer
     Dosage: DAILY DOSE 80 MG
     Route: 042
     Dates: end: 20180117
  6. DEGARELIX [Concomitant]
     Active Substance: DEGARELIX
     Indication: Metastases to bone
  7. ZYTIGA [Concomitant]
     Active Substance: ABIRATERONE ACETATE
     Indication: Metastases to bone
     Dosage: DAILY DOSE 250 MG
     Route: 048
     Dates: end: 20171205
  8. ZYTIGA [Concomitant]
     Active Substance: ABIRATERONE ACETATE
     Indication: Hormone-refractory prostate cancer
  9. PREDNISOLONE [Concomitant]
     Active Substance: PREDNISOLONE
     Indication: Metastases to bone
     Dosage: DAILY DOSE 10 MG
     Route: 048
  10. PREDNISOLONE [Concomitant]
     Active Substance: PREDNISOLONE
     Indication: Hormone-refractory prostate cancer
  11. SUPER CAL600-MG300 [Concomitant]
     Dosage: DAILY DOSE 2 DF
     Route: 048
  12. TAMSULOSIN HYDROCHLORIDE [Concomitant]
     Active Substance: TAMSULOSIN HYDROCHLORIDE
     Indication: Benign prostatic hyperplasia
     Dosage: DAILY DOSE 0.2 MG
     Route: 048

REACTIONS (3)
  - Pancytopenia [Fatal]
  - Hormone-refractory prostate cancer [Fatal]
  - Myelosuppression [Not Recovered/Not Resolved]

NARRATIVE: CASE EVENT DATE: 20171101
